FAERS Safety Report 17291062 (Version 1)
Quarter: 2020Q1

REPORT INFORMATION
  Report Type: Report from Study
  Country: US (occurrence: US)
  Receive Date: 20200121
  Receipt Date: 20200121
  Transmission Date: 20200409
  Serious: Yes (Other)
  Sender: FDA-Public Use
  Company Number: US-BAYER-2019-236020

PATIENT
  Age: 74 Year
  Sex: Female
  Weight: 60.32 kg

DRUGS (2)
  1. ADEMPAS [Suspect]
     Active Substance: RIOCIGUAT
     Indication: PULMONARY ARTERIAL HYPERTENSION
     Dosage: 1.5 MG, TID
     Route: 048
     Dates: end: 20191231
  2. ADEMPAS [Suspect]
     Active Substance: RIOCIGUAT
     Indication: PULMONARY ARTERIAL HYPERTENSION
     Dosage: UNK
     Route: 048
     Dates: start: 20190905

REACTIONS (10)
  - Blood pressure diastolic decreased [None]
  - Dizziness [Unknown]
  - Sputum discoloured [None]
  - Hypotension [None]
  - Productive cough [None]
  - Fatigue [Unknown]
  - Oedema peripheral [None]
  - Diarrhoea [Unknown]
  - Somnolence [None]
  - Abdominal pain upper [None]

NARRATIVE: CASE EVENT DATE: 2019
